FAERS Safety Report 18125009 (Version 3)
Quarter: 2020Q4

REPORT INFORMATION
  Report Type: Report from Study
  Country: US (occurrence: US)
  Receive Date: 20200807
  Receipt Date: 20201123
  Transmission Date: 20210113
  Serious: Yes (Other)
  Sender: FDA-Public Use
  Company Number: NVSC2020US216906

PATIENT
  Age: 68 Year
  Sex: Female

DRUGS (3)
  1. COSENTYX [Suspect]
     Active Substance: SECUKINUMAB
     Indication: PSORIASIS
  2. COSENTYX [Suspect]
     Active Substance: SECUKINUMAB
     Indication: PSORIATIC ARTHROPATHY
  3. COSENTYX [Suspect]
     Active Substance: SECUKINUMAB
     Indication: ARTHROPATHY
     Dosage: 150 MG, QMO
     Route: 058
     Dates: start: 20200101

REACTIONS (8)
  - Pyrexia [Recovering/Resolving]
  - Cough [Recovering/Resolving]
  - Arthralgia [Unknown]
  - Illness [Recovering/Resolving]
  - Back pain [Recovering/Resolving]
  - Headache [Recovering/Resolving]
  - Product use in unapproved indication [Unknown]
  - COVID-19 [Recovering/Resolving]

NARRATIVE: CASE EVENT DATE: 202001
